FAERS Safety Report 24587180 (Version 2)
Quarter: 2024Q4

REPORT INFORMATION
  Report Type: Spontaneous
  Country: GB (occurrence: GB)
  Receive Date: 20241107
  Receipt Date: 20241230
  Transmission Date: 20250114
  Serious: No
  Sender: TEVA
  Company Number: GB-MHRA-TPP18452013C10677244YC1729862594562

PATIENT
  Age: 27 Year
  Sex: Male
  Weight: 55 kg

DRUGS (7)
  1. DOXYCYCLINE [Suspect]
     Active Substance: DOXYCYCLINE
     Indication: Ill-defined disorder
     Dosage: TPP YC - PLEASE RECLASSIFY
     Route: 065
     Dates: start: 20241025
  2. OTOMIZE [Concomitant]
     Indication: Ill-defined disorder
     Dosage: TIME INTERVAL: 0.33333333 DAYS: 1 SPRAY THREE TIMES A DAY INTO EAR, TPP YC - PLEASE RECLASSIFY
     Route: 001
     Dates: start: 20241008, end: 20241015
  3. DOXYCYCLINE [Concomitant]
     Active Substance: DOXYCYCLINE
     Indication: Ill-defined disorder
     Dosage: TPP YC - PLEASE RECLASSIFY
     Dates: start: 20241017, end: 20241024
  4. NAPROXEN [Concomitant]
     Active Substance: NAPROXEN
     Indication: Ill-defined disorder
     Dosage: WITH FOOD, TPP YC - PLEASE RECLASSIFY
     Dates: start: 20241003, end: 20241017
  5. LANSOPRAZOLE [Concomitant]
     Active Substance: LANSOPRAZOLE
     Indication: Ill-defined disorder
     Dosage: TPP YC - PLEASE RECLASSIFY
     Dates: start: 20241003
  6. PROPRANOLOL [Concomitant]
     Active Substance: PROPRANOLOL HYDROCHLORIDE
     Indication: Ill-defined disorder
     Dosage: TAKE ONE UP TO THREE 3 TIMES/DAY, TPP YC - PLEASE RECLASSIFY
     Dates: start: 20241020
  7. CLARITHROMYCIN [Concomitant]
     Active Substance: CLARITHROMYCIN
     Indication: Ill-defined disorder
     Dosage: TO TREA..., TPP YC - PLEASE RECLASSIFY
     Dates: start: 20241008, end: 20241015

REACTIONS (1)
  - Rash [Recovered/Resolved]

NARRATIVE: CASE EVENT DATE: 20241025
